FAERS Safety Report 6136686-3 (Version None)
Quarter: 2009Q1

REPORT INFORMATION
  Report Type: 
  Country: None (occurrence: None)
  Receive Date: 20090325
  Receipt Date: 20090310
  Transmission Date: 20090719
  Serious: Yes (Death, Other)
  Sender: FDA-Public Use
  Company Number: JPI-P-005581

PATIENT
  Age: 43 Year
  Sex: Female
  Weight: 51.7101 kg

DRUGS (6)
  1. XYREM [Suspect]
     Indication: NARCOLEPSY
     Dosage: (4.5 GM, 1 D), ORAL
     Route: 048
  2. METHAMPHETAMINE HYDROCHLORIDE [Suspect]
     Indication: DRUG USE FOR UNKNOWN INDICATION
  3. AMPHETAMINE SULFATE [Suspect]
     Indication: DRUG USE FOR UNKNOWN INDICATION
  4. CHLORPHENTERMINE 65MG TAB [Suspect]
     Indication: DRUG USE FOR UNKNOWN INDICATION
  5. BENZODIAZEPINES [Suspect]
     Indication: DRUG USE FOR UNKNOWN INDICATION
  6. COCAINE [Suspect]
     Indication: DRUG USE FOR UNKNOWN INDICATION

REACTIONS (6)
  - ACCIDENTAL DEATH [None]
  - COMA [None]
  - DRUG ABUSE [None]
  - DRUG SCREEN POSITIVE [None]
  - DRUG TOXICITY [None]
  - OVERDOSE [None]
